FAERS Safety Report 7068704-2 (Version None)
Quarter: 2010Q4

REPORT INFORMATION
  Report Type: 
  Country: None (occurrence: None)
  Receive Date: 20101028
  Receipt Date: 20101018
  Transmission Date: 20110411
  Serious: Yes (Other)
  Sender: FDA-Public Use
  Company Number: JP-PFIZER INC-2010105432

PATIENT
  Age: 67 Year
  Sex: Female

DRUGS (4)
  1. AROMASIN [Suspect]
     Indication: BREAST CANCER
     Dosage: 25 MG, 1X/DAY
     Route: 048
  2. PENGOOD [Concomitant]
     Indication: NASOPHARYNGITIS
  3. LEFTOSE [Concomitant]
     Indication: NASOPHARYNGITIS
  4. CALONAL [Concomitant]
     Indication: NASOPHARYNGITIS

REACTIONS (1)
  - CONVULSION [None]
